FAERS Safety Report 4593075-0 (Version None)
Quarter: 2005Q1

REPORT INFORMATION
  Report Type: 
  Country: None (occurrence: None)
  Receive Date: 20050301
  Receipt Date: 20041104
  Transmission Date: 20050727
  Serious: Yes (Other)
  Sender: FDA-Public Use
  Company Number: JP-ABBOTT-04P-087-0282315-00

PATIENT
  Age: 44 Month
  Sex: Female
  Weight: 10 kg

DRUGS (4)
  1. SEVORANE LIQUID FOR INHALATION [Suspect]
     Indication: ANAESTHESIA
  2. NITROUS OXIDE [Concomitant]
     Indication: ANAESTHESIA
     Dosage: NOT REPORTED
     Route: 055
  3. OXYGEN [Concomitant]
     Indication: ANAESTHESIA
     Dosage: NOT REPORTED
     Route: 055
  4. VECURONIUM BROMIDE [Concomitant]
     Indication: ANAESTHESIA
     Dosage: NOT REPORTED

REACTIONS (1)
  - INTESTINAL OBSTRUCTION [None]
